FAERS Safety Report 14873619 (Version 1)
Quarter: 2018Q2

REPORT INFORMATION
  Report Type: Spontaneous
  Country: US (occurrence: US)
  Receive Date: 20180424
  Receipt Date: 20180424
  Transmission Date: 20180711
  Serious: No
  Sender: FDA-Public Use
  Company Number: None

PATIENT
  Age: 27 Year
  Sex: Female
  Weight: 59.4 kg

DRUGS (1)
  1. MESALAMINE. [Suspect]
     Active Substance: MESALAMINE
     Indication: COLITIS ULCERATIVE
     Dosage: 1.2 G 4 TIMES A DAY ORAL
     Route: 048
     Dates: start: 20180329, end: 20180413

REACTIONS (2)
  - Condition aggravated [None]
  - Colitis ulcerative [None]

NARRATIVE: CASE EVENT DATE: 20180329
